FAERS Safety Report 6381877-X (Version None)
Quarter: 2009Q3

REPORT INFORMATION
  Report Type: 
  Country: None (occurrence: None)
  Receive Date: 20090930
  Receipt Date: 20090917
  Transmission Date: 20100115
  Serious: Yes (Hospitalization, Other)
  Sender: FDA-Public Use
  Company Number: US-CELGENEUS-163-21880-09071696

PATIENT
  Sex: Female

DRUGS (11)
  1. REVLIMID [Suspect]
     Route: 048
     Dates: start: 20080101
  2. REVLIMID [Suspect]
     Route: 048
     Dates: start: 20080101
  3. NITROFURANTOIN [Concomitant]
     Dates: start: 20090201
  4. COUMADIN [Concomitant]
     Dosage: 4MG/2MG
     Route: 065
  5. LIPITOR [Concomitant]
     Indication: DRUG USE FOR UNKNOWN INDICATION
     Route: 065
  6. PREDNISONE TAB [Concomitant]
     Indication: DRUG USE FOR UNKNOWN INDICATION
     Route: 065
  7. LEVOTHYROXINE SODIUM [Concomitant]
     Indication: DRUG USE FOR UNKNOWN INDICATION
     Route: 065
  8. DETROL LA [Concomitant]
     Route: 065
  9. VITAMIN D [Concomitant]
     Indication: DRUG USE FOR UNKNOWN INDICATION
     Dosage: 400 UNITS
     Route: 065
  10. NITROGLYCERIN [Concomitant]
     Indication: DRUG USE FOR UNKNOWN INDICATION
     Route: 065
  11. FLUIDS [Concomitant]
     Indication: DRUG USE FOR UNKNOWN INDICATION
     Route: 051

REACTIONS (7)
  - ASTHENIA [None]
  - CEREBROVASCULAR ACCIDENT [None]
  - COAGULATION TIME PROLONGED [None]
  - HYPOKALAEMIA [None]
  - PULMONARY EMBOLISM [None]
  - RASH [None]
  - URINARY TRACT INFECTION [None]
